FAERS Safety Report 12781238 (Version 1)
Quarter: 2016Q3

REPORT INFORMATION
  Report Type: Spontaneous
  Country: US (occurrence: US)
  Receive Date: 20160926
  Receipt Date: 20160926
  Transmission Date: 20161109
  Serious: No
  Sender: FDA-Public Use
  Company Number: US-GLENMARK PHARMACEUTICALS INC, USA.-2015GMK018999

PATIENT
  Age: 19 Year
  Sex: Male

DRUGS (25)
  1. ANTIHISTAMINES [Suspect]
     Active Substance: ANTIHISTAMINES NOS
     Indication: IDIOPATHIC URTICARIA
  2. MONTELUKAST [Suspect]
     Active Substance: MONTELUKAST SODIUM
     Indication: IDIOPATHIC URTICARIA
  3. STEROID ANTIBACTERIALS [Suspect]
     Active Substance: UNSPECIFIED INGREDIENT
     Indication: ORAL ALLERGY SYNDROME
     Dosage: UNK
  4. STEROID ANTIBACTERIALS [Suspect]
     Active Substance: UNSPECIFIED INGREDIENT
     Indication: ANGIOEDEMA
  5. AZELASTINE [Suspect]
     Active Substance: AZELASTINE
     Indication: FOOD ALLERGY
  6. MONTELUKAST [Suspect]
     Active Substance: MONTELUKAST SODIUM
     Indication: ASTHMA
  7. STEROID ANTIBACTERIALS [Suspect]
     Active Substance: UNSPECIFIED INGREDIENT
     Indication: FOOD ALLERGY
  8. MONTELUKAST [Suspect]
     Active Substance: MONTELUKAST SODIUM
     Indication: RHINITIS ALLERGIC
  9. STEROID ANTIBACTERIALS [Suspect]
     Active Substance: UNSPECIFIED INGREDIENT
     Indication: IDIOPATHIC URTICARIA
  10. AZELASTINE [Suspect]
     Active Substance: AZELASTINE
     Indication: ANGIOEDEMA
  11. PRILOSEC [Suspect]
     Active Substance: OMEPRAZOLE MAGNESIUM
     Indication: PRODUCT USED FOR UNKNOWN INDICATION
     Dosage: UNK
  12. MONTELUKAST [Suspect]
     Active Substance: MONTELUKAST SODIUM
     Indication: ANGIOEDEMA
  13. ANTIHISTAMINES [Suspect]
     Active Substance: ANTIHISTAMINES NOS
     Indication: ORAL ALLERGY SYNDROME
  14. ANTIHISTAMINES [Suspect]
     Active Substance: ANTIHISTAMINES NOS
     Indication: FOOD ALLERGY
  15. STEROID ANTIBACTERIALS [Suspect]
     Active Substance: UNSPECIFIED INGREDIENT
     Indication: ASTHMA
  16. AZELASTINE [Suspect]
     Active Substance: AZELASTINE
     Indication: ORAL ALLERGY SYNDROME
     Dosage: UNK
     Route: 045
  17. AZELASTINE [Suspect]
     Active Substance: AZELASTINE
     Indication: IDIOPATHIC URTICARIA
  18. MONTELUKAST [Suspect]
     Active Substance: MONTELUKAST SODIUM
     Indication: ORAL ALLERGY SYNDROME
     Dosage: UNK
  19. MONTELUKAST [Suspect]
     Active Substance: MONTELUKAST SODIUM
     Indication: FOOD ALLERGY
  20. AZELASTINE [Suspect]
     Active Substance: AZELASTINE
     Indication: RHINITIS ALLERGIC
  21. ANTIHISTAMINES [Suspect]
     Active Substance: ANTIHISTAMINES NOS
     Indication: ANGIOEDEMA
  22. ANTIHISTAMINES [Suspect]
     Active Substance: ANTIHISTAMINES NOS
     Indication: ASTHMA
  23. STEROID ANTIBACTERIALS [Suspect]
     Active Substance: UNSPECIFIED INGREDIENT
     Indication: RHINITIS ALLERGIC
  24. AZELASTINE [Suspect]
     Active Substance: AZELASTINE
     Indication: ASTHMA
  25. ANTIHISTAMINES [Suspect]
     Active Substance: ANTIHISTAMINES NOS
     Indication: RHINITIS ALLERGIC

REACTIONS (1)
  - Off label use [Unknown]
